FAERS Safety Report 20080728 (Version 1)
Quarter: 2021Q4

REPORT INFORMATION
  Report Type: Report from Study
  Country: US (occurrence: US)
  Receive Date: 20211117
  Receipt Date: 20211117
  Transmission Date: 20220303
  Serious: Yes (Hospitalization)
  Sender: FDA-Public Use
  Company Number: US-PFIZER INC-202101383166

PATIENT
  Age: 73 Year
  Sex: Female
  Weight: 85.7 kg

DRUGS (4)
  1. AVELUMAB [Suspect]
     Active Substance: AVELUMAB
     Indication: Endometrial cancer
     Dosage: 800 MG, 2X/WEEK
     Route: 042
     Dates: start: 20211008
  2. AXITINIB [Suspect]
     Active Substance: AXITINIB
     Indication: Endometrial cancer
     Dosage: 3 MG, 2X/DAY
     Route: 048
     Dates: start: 20211008
  3. OXYBUTYNIN [Suspect]
     Active Substance: OXYBUTYNIN
     Indication: Urinary incontinence
     Dosage: UNK
     Route: 048
     Dates: start: 20211021, end: 20211025
  4. LISINOPRIL [Concomitant]
     Active Substance: LISINOPRIL
     Indication: Hypertension
     Dosage: UNK
     Route: 048
     Dates: start: 20211012

REACTIONS (1)
  - Confusional state [Recovered/Resolved]

NARRATIVE: CASE EVENT DATE: 20211012
